FAERS Safety Report 6231747-2 (Version None)
Quarter: 2009Q2

REPORT INFORMATION
  Report Type: 
  Country: None (occurrence: None)
  Receive Date: 20090612
  Receipt Date: 20090612
  Transmission Date: 20091009
  Serious: Yes (Other)
  Sender: FDA-Public Use
  Company Number: None

PATIENT
  Age: 62 Year
  Sex: Male
  Weight: 116.1208 kg

DRUGS (1)
  1. CYMBALTA [Suspect]
     Indication: SPINAL DISORDER
     Dosage: ONE CAPSULE DAILY PO
     Route: 048
     Dates: start: 20090414, end: 20090428

REACTIONS (5)
  - FATIGUE [None]
  - LOSS OF CONSCIOUSNESS [None]
  - MENTAL DISORDER [None]
  - TINNITUS [None]
  - WITHDRAWAL SYNDROME [None]
